FAERS Safety Report 7860196-6 (Version None)
Quarter: 2011Q4

REPORT INFORMATION
  Report Type: 
  Country: None (occurrence: None)
  Receive Date: 20111027
  Receipt Date: 20111020
  Transmission Date: 20120403
  Serious: Yes (Death)
  Sender: FDA-Public Use
  Company Number: GB-ROCHE-GNE320961

PATIENT
  Sex: Female

DRUGS (11)
  1. ASPIRIN [Concomitant]
     Indication: PRODUCT USED FOR UNKNOWN INDICATION
  2. PROMAZINE HYDROCHLORIDE [Concomitant]
  3. TRANEXAMIC ACID [Concomitant]
  4. LOPERAMIDE HCL [Concomitant]
     Indication: PRODUCT USED FOR UNKNOWN INDICATION
  5. AMLODIPINE [Concomitant]
     Indication: HYPERTENSION
  6. FERROUS SULFATE TAB [Concomitant]
  7. ZOPICLONE [Concomitant]
  8. ACETAMINOPHEN [Concomitant]
     Indication: PRODUCT USED FOR UNKNOWN INDICATION
  9. BIMATOPROST [Concomitant]
     Indication: PRODUCT USED FOR UNKNOWN INDICATION
  10. LUCENTIS [Suspect]
     Indication: AGE-RELATED MACULAR DEGENERATION
     Route: 050
     Dates: start: 20080901, end: 20081210
  11. FORTISIP [Concomitant]
     Indication: PRODUCT USED FOR UNKNOWN INDICATION

REACTIONS (3)
  - HAEMATURIA [None]
  - ANAEMIA [None]
  - RENAL FAILURE [None]
